APPROVED DRUG PRODUCT: CLEOCIN HYDROCHLORIDE
Active Ingredient: CLINDAMYCIN HYDROCHLORIDE
Strength: EQ 300MG BASE
Dosage Form/Route: CAPSULE;ORAL
Application: N050162 | Product #003 | TE Code: AB
Applicant: PFIZER INC
Approved: Apr 14, 1988 | RLD: Yes | RS: Yes | Type: RX